FAERS Safety Report 20229226 (Version 5)
Quarter: 2022Q4

REPORT INFORMATION
  Report Type: Report from Study
  Country: ES (occurrence: ES)
  Receive Date: 20211225
  Receipt Date: 20221110
  Transmission Date: 20230113
  Serious: Yes (Other)
  Sender: FDA-Public Use
  Company Number: ES-TAKEDA-2021TUS081281

PATIENT
  Age: 49 Year
  Sex: Female

DRUGS (12)
  1. TEDUGLUTIDE [Suspect]
     Active Substance: TEDUGLUTIDE
     Indication: Short-bowel syndrome
     Dosage: 2.5 MILLIGRAM, 1/WEEK
     Route: 042
     Dates: start: 20130401
  2. TEDUGLUTIDE [Suspect]
     Active Substance: TEDUGLUTIDE
     Indication: Short-bowel syndrome
     Dosage: 2.5 MILLIGRAM, 1/WEEK
     Route: 042
     Dates: start: 20130401
  3. TEDUGLUTIDE [Suspect]
     Active Substance: TEDUGLUTIDE
     Indication: Short-bowel syndrome
     Dosage: 2.5 MILLIGRAM, 1/WEEK
     Route: 042
     Dates: start: 20130401
  4. TEDUGLUTIDE [Suspect]
     Active Substance: TEDUGLUTIDE
     Indication: Short-bowel syndrome
     Dosage: 2.5 MILLIGRAM, 1/WEEK
     Route: 042
     Dates: start: 20130401
  5. CALCIUM CARBONATE\CHOLECALCIFEROL [Concomitant]
     Active Substance: CALCIUM CARBONATE\CHOLECALCIFEROL
     Indication: Osteopenia
     Dosage: 1 DOSAGE FORM, QD
     Route: 048
     Dates: start: 20200729, end: 20220125
  6. PANTOPRAZOLE [Concomitant]
     Active Substance: PANTOPRAZOLE
     Indication: Short-bowel syndrome
     Dosage: 20 MILLIGRAM, QD
     Route: 048
     Dates: start: 20100302
  7. RIFAXIMIN [Concomitant]
     Active Substance: RIFAXIMIN
     Indication: Gastrointestinal bacterial overgrowth
     Dosage: 200 MILLIGRAM
     Route: 048
     Dates: start: 20180615
  8. CHOLECALCIFEROL [Concomitant]
     Active Substance: CHOLECALCIFEROL
     Indication: Malabsorption
     Dosage: 15 GTT DROPS, QD
     Route: 048
     Dates: start: 20180103
  9. VITAMIN A + E [Concomitant]
     Indication: Vitamin A deficiency
     Dosage: 5000 MILLIGRAM, QD
     Route: 048
     Dates: start: 20220125
  10. CUPRIC SULFATE ANHYDROUS [Concomitant]
     Active Substance: CUPRIC SULFATE ANHYDROUS
     Indication: Copper deficiency
     Dosage: 5 MILLIGRAM, QD
     Route: 048
     Dates: start: 20220125
  11. ERGOCALCIFEROL [Concomitant]
     Active Substance: ERGOCALCIFEROL
     Indication: Osteopenia
     Dosage: 266 MICROGRAM, 1/WEEK
     Route: 048
     Dates: start: 20220125
  12. FAMOTIDINE [Concomitant]
     Active Substance: FAMOTIDINE
     Indication: Gastric disorder
     Dosage: 20 MILLIGRAM
     Route: 048

REACTIONS (3)
  - Parenteral nutrition associated liver disease [Not Recovered/Not Resolved]
  - Copper deficiency [Not Recovered/Not Resolved]
  - Vitamin A deficiency [Not Recovered/Not Resolved]

NARRATIVE: CASE EVENT DATE: 20211006
